FAERS Safety Report 4707545-5 (Version None)
Quarter: 2005Q3

REPORT INFORMATION
  Report Type: 
  Country: None (occurrence: None)
  Receive Date: 20050706
  Receipt Date: 20050622
  Transmission Date: 20060218
  Serious: Yes (Other)
  Sender: FDA-Public Use
  Company Number: DE-JNJFOC-20050606263

PATIENT
  Sex: Female

DRUGS (3)
  1. CILEST [Suspect]
     Indication: CONTRACEPTION
     Route: 049
  2. THYRONAJOD [Interacting]
     Route: 049
  3. THYRONAJOD [Interacting]
     Route: 049

REACTIONS (5)
  - AMENORRHOEA [None]
  - DRUG INTERACTION [None]
  - HYPERTHYROIDISM [None]
  - HYPOTHYROIDISM [None]
  - MENSTRUAL DISORDER [None]
